FAERS Safety Report 18979819 (Version 3)
Quarter: 2021Q1

REPORT INFORMATION
  Report Type: Spontaneous
  Country: US (occurrence: US)
  Receive Date: 20210308
  Receipt Date: 20210331
  Transmission Date: 20210420
  Serious: Yes (Hospitalization, Other)
  Sender: FDA-Public Use
  Company Number: US-PFIZER INC-2021122732

PATIENT
  Age: 70 Year
  Sex: Female
  Weight: 67.13 kg

DRUGS (4)
  1. PREMARIN [Suspect]
     Active Substance: ESTROGENS, CONJUGATED
     Dosage: UNK, 0.5, 2X/WEEK [OVER 9 AND SHE TAKES THAT TWICE PER WEEK]
     Route: 067
  2. PREMARIN [Suspect]
     Active Substance: ESTROGENS, CONJUGATED
     Indication: VULVOVAGINAL DRYNESS
     Dosage: 1 G (APPLY/INSERT 1 GRAM VIA VAGINA AT BEDTIME 3 NIGHTS A WEEK)
     Route: 067
  3. MODERNA COVID?19 VACCINE [Concomitant]
     Active Substance: CX-024414
     Dosage: UNK
  4. PREMARIN [Suspect]
     Active Substance: ESTROGENS, CONJUGATED
     Dosage: 1 G (APPLY/INSERT 1 GRAM VIA VAGINA AT BEDTIME 3 NIGHTS A WEEK)
     Route: 067

REACTIONS (3)
  - Fall [Recovered/Resolved]
  - Brain injury [Recovered/Resolved]
  - Off label use [Unknown]

NARRATIVE: CASE EVENT DATE: 20210214
